FAERS Safety Report 14532452 (Version 1)
Quarter: 2018Q1

REPORT INFORMATION
  Report Type: Spontaneous
  Country: US (occurrence: US)
  Receive Date: 20180214
  Receipt Date: 20180214
  Transmission Date: 20180509
  Serious: No
  Sender: FDA-Public Use
  Company Number: US-BAUSCH-BL-2017-021280

PATIENT
  Sex: Female

DRUGS (1)
  1. VASOTEC [Suspect]
     Active Substance: ENALAPRIL MALEATE
     Indication: PRODUCT USED FOR UNKNOWN INDICATION
     Dosage: NOT USED IT FOR LAST 20 OR 30 YEARS.
     Route: 065

REACTIONS (5)
  - Product odour abnormal [Unknown]
  - Throat irritation [Unknown]
  - Cough [Unknown]
  - Product solubility abnormal [Unknown]
  - Dysarthria [Unknown]
